FAERS Safety Report 9183890 (Version 1)
Quarter: 2013Q1

REPORT INFORMATION
  Report Type: Spontaneous
  Country: US (occurrence: US)
  Receive Date: 20130322
  Receipt Date: 20130322
  Transmission Date: 20140127
  Serious: Yes (Other)
  Sender: FDA-Public Use
  Company Number: US-BRISTOL-MYERS SQUIBB COMPANY-16656449

PATIENT
  Age: 58 Year
  Sex: Female

DRUGS (3)
  1. ERBITUX [Suspect]
  2. BENADRYL [Concomitant]
     Dosage: INF RECEIVING ON 24X7
  3. ATIVAN [Concomitant]
     Dosage: INF RECEIVING ON 24X7

REACTIONS (2)
  - Device related infection [Unknown]
  - Skin discolouration [Recovered/Resolved]
